FAERS Safety Report 4267192-9 (Version None)
Quarter: 2004Q1

REPORT INFORMATION
  Report Type: 
  Country: None (occurrence: None)
  Receive Date: 20040107
  Receipt Date: 20031210
  Transmission Date: 20041129
  Serious: Yes (Hospitalization)
  Sender: FDA-Public Use
  Company Number: 2003AP04480

PATIENT
  Age: 79 Year
  Sex: Female
  Weight: 50.2 kg

DRUGS (6)
  1. OMEPRAZOLE [Suspect]
     Indication: REFLUX OESOPHAGITIS
     Dosage: 20 MG DAILY PO
     Route: 048
     Dates: start: 20031122, end: 20031203
  2. ALMARL [Concomitant]
  3. MUNOBAL [Concomitant]
  4. NITOROL [Concomitant]
  5. MEXITIL [Concomitant]
  6. JUVELA [Concomitant]

REACTIONS (8)
  - BLOOD CREATININE INCREASED [None]
  - BODY TEMPERATURE INCREASED [None]
  - DRUG ERUPTION [None]
  - GENERALISED ERYTHEMA [None]
  - PRURITUS [None]
  - STEVENS-JOHNSON SYNDROME [None]
  - TOXIC EPIDERMAL NECROLYSIS [None]
  - WHITE BLOOD CELL COUNT INCREASED [None]
